FAERS Safety Report 10026966 (Version 2)
Quarter: 2014Q1

REPORT INFORMATION
  Report Type: Report from Study
  Country: US (occurrence: US)
  Receive Date: 20140321
  Receipt Date: 20140321
  Transmission Date: 20141002
  Serious: Yes (Other)
  Sender: FDA-Public Use
  Company Number: US-ROCHE-1277534

PATIENT
  Age: 62 Year
  Sex: Male
  Weight: 79 kg

DRUGS (6)
  1. XELODA [Suspect]
     Indication: COLON CANCER
     Dosage: EVERY AM
     Route: 048
     Dates: start: 20130906
  2. XELODA [Suspect]
     Route: 048
     Dates: start: 20130904
  3. ASPIRIN [Concomitant]
     Route: 048
  4. PROCHLORPERAZINE [Concomitant]
     Indication: NAUSEA
     Dosage: EVERY 6 HOURS AS NEEDED
     Route: 048
  5. PROCHLORPERAZINE [Concomitant]
     Indication: VOMITING
  6. VITAMIN B6 [Concomitant]
     Route: 048

REACTIONS (5)
  - Palmar-plantar erythrodysaesthesia syndrome [Not Recovered/Not Resolved]
  - Pharyngeal ulceration [Recovered/Resolved]
  - Cheilitis [Not Recovered/Not Resolved]
  - Lacrimation increased [Not Recovered/Not Resolved]
  - Frequent bowel movements [Not Recovered/Not Resolved]
